FAERS Safety Report 7451880-7 (Version None)
Quarter: 2011Q2

REPORT INFORMATION
  Report Type: 
  Country: None (occurrence: None)
  Receive Date: 20110425
  Receipt Date: 20110414
  Transmission Date: 20111010
  Serious: Yes (Other)
  Sender: FDA-Public Use
  Company Number: 2011SP010560

PATIENT
  Age: 31 Year
  Sex: Male

DRUGS (8)
  1. PAROXETINE HCL [Concomitant]
  2. HYDROCHLORIDE HYDRATE [Concomitant]
  3. MIRTAZAPINE [Suspect]
     Indication: DEPRESSION
     Dosage: 15 MG;QD;PO; 30 MG;QD;PO; 15 MG;QD;PO
     Route: 048
     Dates: start: 20100716, end: 20100729
  4. MIRTAZAPINE [Suspect]
     Indication: DEPRESSION
     Dosage: 15 MG;QD;PO; 30 MG;QD;PO; 15 MG;QD;PO
     Route: 048
     Dates: start: 20100730, end: 20101220
  5. MIRTAZAPINE [Suspect]
     Indication: DEPRESSION
     Dosage: 15 MG;QD;PO; 30 MG;QD;PO; 15 MG;QD;PO
     Route: 048
     Dates: start: 20101221
  6. PAROXETINE HCL [Concomitant]
  7. HYDROCHLORIDE HYDRATE [Concomitant]
  8. SULPRIDE [Concomitant]

REACTIONS (4)
  - EMOTIONAL DISTRESS [None]
  - INTENTIONAL SELF-INJURY [None]
  - LACERATION [None]
  - IMPULSIVE BEHAVIOUR [None]
